FAERS Safety Report 4294188-3 (Version None)
Quarter: 2004Q1

REPORT INFORMATION
  Report Type: 
  Country: None (occurrence: None)
  Receive Date: 20040211
  Receipt Date: 20040129
  Transmission Date: 20041129
  Serious: Yes (Other)
  Sender: FDA-Public Use
  Company Number: 2003124685

PATIENT
  Age: 80 Year
  Sex: Female
  Weight: 57.6068 kg

DRUGS (11)
  1. LIPITOR [Suspect]
     Indication: BLOOD CHOLESTEROL INCREASED
     Dosage: 40 MG
     Dates: start: 20030101
  2. LEVOTHYROXINE SODIUM [Concomitant]
  3. LOSARTAN POTASSIUM (LOSARTAN POTASSIUM) [Concomitant]
  4. ESOMEPRAZOLE (ESOMEPRAZOLE) [Concomitant]
  5. REPAGLINIDE (REPAGLINIDE) [Concomitant]
  6. AMLODIPINE [Concomitant]
  7. CEFALEXIN (CEFALEXINE) [Concomitant]
  8. CLOPIDOGREL BISULFATE [Concomitant]
  9. ACETYLSALICYLIC ACID SRT [Concomitant]
  10. DOCUSATE SODIUM (DOCUSATE SODIUM) [Concomitant]
  11. PREDNISOLONE [Concomitant]

REACTIONS (11)
  - ABNORMAL SENSATION IN EYE [None]
  - BLOOD CREATININE INCREASED [None]
  - BLOOD UREA INCREASED [None]
  - HEADACHE [None]
  - MALAISE [None]
  - MYALGIA [None]
  - NECK PAIN [None]
  - PAIN [None]
  - PAIN IN EXTREMITY [None]
  - PAIN OF SKIN [None]
  - PYREXIA [None]
